FAERS Safety Report 5140868-7 (Version None)
Quarter: 2006Q4

REPORT INFORMATION
  Report Type: 
  Country: None (occurrence: None)
  Receive Date: 20061026
  Receipt Date: 20061013
  Transmission Date: 20070319
  Serious: Yes (Death, Other)
  Sender: FDA-Public Use
  Company Number: 2006126126

PATIENT
  Age: 32 Year
  Sex: Female

DRUGS (4)
  1. VFEND [Suspect]
     Indication: BRONCHOPULMONARY ASPERGILLOSIS
     Dosage: 400 MG (200 MG, 2 IN 1 D) ORAL
     Route: 048
  2. LAMIVUDINE [Concomitant]
  3. IMIPENEM [Concomitant]
  4. VANCOMYCIN [Concomitant]

REACTIONS (2)
  - DRUG INEFFECTIVE [None]
  - ROAD TRAFFIC ACCIDENT [None]
